FAERS Safety Report 15414733 (Version 4)
Quarter: 2019Q4

REPORT INFORMATION
  Report Type: Report from Study
  Country: TW (occurrence: TW)
  Receive Date: 20180921
  Receipt Date: 20191230
  Transmission Date: 20200122
  Serious: Yes (Death, Life-Threatening, Hospitalization)
  Sender: FDA-Public Use
  Company Number: PHHY2018TW045114

PATIENT
  Age: 66 Year
  Sex: Male
  Weight: 28 kg

DRUGS (85)
  1. TASIGNA [Suspect]
     Active Substance: NILOTINIB
     Dosage: 150 MG, UNK
     Route: 048
     Dates: start: 20161012, end: 20161108
  2. TASIGNA [Suspect]
     Active Substance: NILOTINIB
     Dosage: 150 MG, UNK
     Route: 048
     Dates: start: 20161109, end: 20170131
  3. ACETYLCYSTEINE. [Concomitant]
     Active Substance: ACETYLCYSTEINE
     Dosage: 200 MG, UNK
     Route: 048
     Dates: start: 20180204, end: 20180204
  4. ACETYLCYSTEINE. [Concomitant]
     Active Substance: ACETYLCYSTEINE
     Dosage: 600 MG, UNK
     Route: 048
     Dates: start: 20180213, end: 20180217
  5. GLUCOSE [Concomitant]
     Active Substance: DEXTROSE
     Dosage: 20 ML, UNK
     Route: 042
     Dates: start: 20180126, end: 20180126
  6. GLUCOSE [Concomitant]
     Active Substance: DEXTROSE
     Dosage: 80 ML, UNK
     Route: 042
     Dates: start: 20180302, end: 20180303
  7. BENZBROMARONE [Concomitant]
     Active Substance: BENZBROMARONE
     Indication: GOUT
     Dosage: 100 MG, UNK
     Route: 048
     Dates: start: 20180130, end: 20180207
  8. BISOPROLOL [Concomitant]
     Active Substance: BISOPROLOL
     Indication: HYPERTENSION
     Dosage: 1.25 MG, UNK
     Route: 048
     Dates: start: 20171124, end: 20171206
  9. PANTOPRAZOLE [Concomitant]
     Active Substance: PANTOPRAZOLE
     Dosage: 80 MG, UNK
     Route: 042
     Dates: start: 20180215, end: 20180215
  10. TASIGNA [Suspect]
     Active Substance: NILOTINIB
     Dosage: 150 MG, UNK
     Route: 048
     Dates: start: 20170201, end: 20170523
  11. TASIGNA [Suspect]
     Active Substance: NILOTINIB
     Dosage: 200 MG, UNK
     Route: 048
     Dates: start: 20170524, end: 20180206
  12. ACETAMINOPHEN. [Concomitant]
     Active Substance: ACETAMINOPHEN
     Indication: GOUT
     Dosage: 500 MG, UNK
     Route: 048
     Dates: start: 20171117, end: 20171124
  13. ACETYLCYSTEINE. [Concomitant]
     Active Substance: ACETYLCYSTEINE
     Dosage: 200 MG, UNK
     Route: 048
     Dates: start: 20180121, end: 20180204
  14. DULCOLAX NOS [Concomitant]
     Active Substance: BISACODYL OR DOCUSATE SODIUM
     Indication: PROPHYLAXIS
     Dosage: 2 DF, UNK
     Route: 051
     Dates: start: 20171208, end: 20171208
  15. ESOMEPRAZOLE. [Concomitant]
     Active Substance: ESOMEPRAZOLE MAGNESIUM
     Indication: PROPHYLAXIS
     Dosage: 40 MG, UNK
     Route: 048
     Dates: start: 20171214, end: 20171215
  16. ISOPHANE INSULIN [Concomitant]
     Active Substance: INSULIN NOS
     Indication: DIABETES MELLITUS
     Dosage: 16 U, UNK
     Route: 058
     Dates: start: 20180307, end: 20180307
  17. INSULIN REGULAR HM [Concomitant]
     Active Substance: INSULIN NOS
     Indication: DIABETES MELLITUS
     Dosage: 6 U, UNK
     Route: 058
     Dates: start: 20171213, end: 20171213
  18. PHYTOMENADIONE [Concomitant]
     Active Substance: PHYTONADIONE
     Indication: WOUND TREATMENT
     Dosage: 10 MG, UNK
     Route: 042
     Dates: start: 20171224, end: 20171224
  19. INSULIN REGULAR [Concomitant]
     Active Substance: INSULIN NOS
     Dosage: 6 U, UNK
     Route: 058
     Dates: start: 20180103, end: 20180111
  20. TRANEXAMIC ACID. [Concomitant]
     Active Substance: TRANEXAMIC ACID
     Dosage: 250 MG, UNK
     Route: 042
     Dates: start: 20180220, end: 20180227
  21. TASIGNA [Suspect]
     Active Substance: NILOTINIB
     Dosage: 300 MG, UNK
     Route: 048
     Dates: start: 20160914, end: 20161011
  22. GLUCOSE [Concomitant]
     Active Substance: DEXTROSE
     Dosage: 40 ML, UNK
     Route: 042
  23. BISACODYL. [Concomitant]
     Active Substance: BISACODYL
     Dosage: 5 MG, UNK
     Route: 048
     Dates: start: 20180204, end: 20180204
  24. SMECTITE [Concomitant]
     Active Substance: MONTMORILLONITE
     Indication: RESPIRATORY DISORDER PROPHYLAXIS
     Dosage: 3 G, UNK
     Route: 048
     Dates: start: 20180209, end: 20180219
  25. INSULIN ASPART [Concomitant]
     Active Substance: INSULIN ASPART
     Indication: DIABETES MELLITUS
     Dosage: 6 U, UNK
     Route: 042
     Dates: start: 20171220, end: 20171221
  26. INSULIN ASPART [Concomitant]
     Active Substance: INSULIN ASPART
     Dosage: 4 U, UNK
     Route: 042
     Dates: start: 20180118, end: 20180213
  27. SILYMARIN [Concomitant]
     Active Substance: DIETARY SUPPLEMENT\HERBALS\MILK THISTLE
     Indication: HEPATIC STEATOSIS
     Dosage: 150 MG, UNK
     Route: 048
     Dates: start: 20180124, end: 20180307
  28. TASIGNA [Suspect]
     Active Substance: NILOTINIB
     Dosage: 150 MG, UNK
     Route: 048
     Dates: start: 20160615, end: 20160628
  29. GLUCOSE [Concomitant]
     Active Substance: DEXTROSE
     Indication: DIABETES MELLITUS
     Dosage: 100 ML, UNK
     Route: 042
     Dates: start: 20171120, end: 20171120
  30. GLUCOSE [Concomitant]
     Active Substance: DEXTROSE
     Dosage: 20 ML, UNK
     Route: 042
     Dates: start: 20180130, end: 20180130
  31. BISACODYL. [Concomitant]
     Active Substance: BISACODYL
     Indication: PROPHYLAXIS
     Dosage: 10 MG, UNK
     Route: 051
     Dates: start: 20180111, end: 20180114
  32. COZAAR [Concomitant]
     Active Substance: LOSARTAN POTASSIUM
     Indication: HYPERTENSION
     Dosage: 25 MG, UNK
     Route: 048
     Dates: start: 20171208, end: 20171218
  33. GLUCOSAMINE HYDROCHLORIDE [Concomitant]
     Active Substance: GLUCOSAMINE HYDROCHLORIDE
     Indication: DIABETES MELLITUS
     Route: 065
  34. MAGNESIUM OXIDE. [Concomitant]
     Active Substance: MAGNESIUM OXIDE
     Indication: PROPHYLAXIS
     Dosage: 250 MG, UNK
     Route: 048
     Dates: start: 20171115, end: 20180202
  35. NPH INSULIN [Concomitant]
     Active Substance: INSULIN BEEF
     Dosage: 6 U, UNK
     Route: 058
     Dates: start: 20180107, end: 20180110
  36. INSULIN REGULAR [Concomitant]
     Active Substance: INSULIN NOS
     Dosage: 10 U, UNK
     Route: 058
     Dates: start: 20171129, end: 20171203
  37. PANTOPRAZOLE [Concomitant]
     Active Substance: PANTOPRAZOLE
     Dosage: 80 MG, UNK
     Route: 042
     Dates: start: 20180203, end: 20180203
  38. SENNOSIDE [Concomitant]
     Active Substance: SENNOSIDES
     Dosage: 2 DF, UNK
     Route: 048
     Dates: start: 20180118, end: 20180205
  39. VENACALO-B6 [Concomitant]
     Active Substance: CALCIUM BROMIDE\DIPHENHYDRAMINE HYDROCHLORIDE\PYRIDOXINE HYDROCHLORIDE
     Indication: ALLERGY PROPHYLAXIS
     Dosage: UNK
     Route: 042
     Dates: start: 20171214, end: 20180215
  40. TRANEXAMIC ACID. [Concomitant]
     Active Substance: TRANEXAMIC ACID
     Dosage: 250 MG, UNK
     Route: 048
     Dates: start: 20180213, end: 20180213
  41. TASIGNA [Suspect]
     Active Substance: NILOTINIB
     Indication: CHRONIC MYELOID LEUKAEMIA
     Dosage: 600 MG, UNK
     Route: 048
     Dates: start: 20160330, end: 20160601
  42. TASIGNA [Suspect]
     Active Substance: NILOTINIB
     Dosage: 300 MG, UNK
     Route: 048
     Dates: start: 20160629, end: 20160824
  43. ACETYLCYSTEINE. [Concomitant]
     Active Substance: ACETYLCYSTEINE
     Dosage: 200 MG, UNK
     Route: 048
     Dates: end: 20180205
  44. ACETYLCYSTEINE. [Concomitant]
     Active Substance: ACETYLCYSTEINE
     Dosage: 200 MG, UNK
     Route: 048
     Dates: start: 20180205, end: 20180213
  45. AMLODIPINE [Concomitant]
     Active Substance: AMLODIPINE BESYLATE
     Indication: HYPERTENSION
     Dosage: 200 MG, UNK
     Route: 048
     Dates: start: 20171117, end: 20171117
  46. COLCHICINE. [Concomitant]
     Active Substance: COLCHICINE
     Indication: GOUT
     Dosage: 0.5 MG, UNK
     Route: 048
     Dates: start: 20171116, end: 20180103
  47. INSULIN ASPART [Concomitant]
     Active Substance: INSULIN ASPART
     Dosage: 6 U, UNK
     Route: 042
     Dates: start: 20180216, end: 20180220
  48. KENTAMIN [Concomitant]
     Indication: GOUT
     Dosage: 1 DF, UNK
     Route: 048
     Dates: start: 20171119, end: 20171120
  49. HUMAN MONOSULIN [Concomitant]
     Active Substance: INSULIN HUMAN
     Indication: DIABETES MELLITUS
     Dosage: 6 U, UNK
     Route: 058
     Dates: start: 20180116, end: 20180116
  50. LANSOPRAZOLE. [Concomitant]
     Active Substance: LANSOPRAZOLE
     Indication: PROPHYLAXIS
     Dosage: 30 MG, UNK
     Route: 048
     Dates: start: 20180206, end: 20180215
  51. MOSAPRIDE [Concomitant]
     Active Substance: MOSAPRIDE
     Indication: PROPHYLAXIS
     Dosage: 5 MG, UNK
     Route: 048
     Dates: start: 20180107, end: 20180213
  52. NOVOMIX [Concomitant]
     Active Substance: INSULIN ASPART
     Indication: DIABETES MELLITUS
     Dosage: 10 U, UNK
     Route: 058
     Dates: start: 20180105, end: 20180105
  53. ACETYLCYSTEINE. [Concomitant]
     Active Substance: ACETYLCYSTEINE
     Indication: PROPHYLAXIS
     Dosage: 600 MG, UNK
     Route: 048
     Dates: start: 20171209, end: 20180103
  54. ACTRAPID [Concomitant]
     Active Substance: INSULIN HUMAN
     Dosage: 2 U, UNK
     Route: 042
     Dates: start: 20180103, end: 20180103
  55. FLEET ENEMA [Concomitant]
     Active Substance: SODIUM PHOSPHATE, DIBASIC\SODIUM PHOSPHATE, MONOBASIC
     Indication: PROPHYLAXIS
     Dosage: 118 ML, UNK
     Route: 051
     Dates: start: 20171212, end: 20171212
  56. MYCOMB [Concomitant]
     Indication: INFECTION PROPHYLAXIS
     Dosage: UNK
     Route: 061
     Dates: start: 20180223
  57. NOLIDIN [Concomitant]
     Indication: PROPHYLAXIS
     Dosage: 1 DF, UNK
     Route: 048
     Dates: start: 20171230, end: 20180103
  58. NPH INSULIN [Concomitant]
     Active Substance: INSULIN BEEF
     Dosage: 14 U, UNK
     Route: 058
     Dates: start: 20180119, end: 20180123
  59. INSULIN REGULAR [Concomitant]
     Active Substance: INSULIN NOS
     Indication: DIABETES MELLITUS
     Dosage: 4 U, UNK
     Route: 058
     Dates: start: 20171126, end: 20171130
  60. INSULIN REGULAR [Concomitant]
     Active Substance: INSULIN NOS
     Dosage: 6 U, UNK
     Route: 058
     Dates: start: 20180215, end: 20180216
  61. SENNOSIDE [Concomitant]
     Active Substance: SENNOSIDES
     Indication: PROPHYLAXIS
     Dosage: 1 DF, UNK
     Route: 048
     Dates: start: 20180110, end: 20180118
  62. SODIUM BICARBONATE. [Concomitant]
     Active Substance: SODIUM BICARBONATE
     Indication: SURGERY
     Dosage: 40 ML, UNK
     Route: 042
     Dates: start: 20171123, end: 20171123
  63. ULCERIN [Concomitant]
     Indication: PROPHYLAXIS
     Dosage: 1 DF, UNK
     Route: 048
     Dates: start: 20171113, end: 20171122
  64. NOVOMIX [Concomitant]
     Active Substance: INSULIN ASPART
     Dosage: 16 U, UNK
     Route: 058
     Dates: start: 20180114, end: 20180115
  65. NOVOMIX [Concomitant]
     Active Substance: INSULIN ASPART
     Dosage: 8 U, UNK
     Route: 058
     Dates: start: 20180126, end: 20180128
  66. ACTRAPID [Concomitant]
     Active Substance: INSULIN HUMAN
     Indication: DIABETES MELLITUS
     Dosage: 14 U, UNK
     Route: 058
     Dates: start: 20171125, end: 20171129
  67. DULCOLAX NOS [Concomitant]
     Active Substance: BISACODYL OR DOCUSATE SODIUM
     Dosage: 2 DF, UNK
     Route: 051
     Dates: start: 20171219, end: 20171219
  68. DULCOLAX NOS [Concomitant]
     Active Substance: BISACODYL OR DOCUSATE SODIUM
     Dosage: 2 DF, UNK
     Route: 051
     Dates: start: 20171222, end: 20171222
  69. GLUCOSAMINE HYDROCHLORIDE [Concomitant]
     Active Substance: GLUCOSAMINE HYDROCHLORIDE
     Indication: DIABETES MELLITUS
  70. INSULIN ASPART [Concomitant]
     Active Substance: INSULIN ASPART
     Dosage: 1 U, UNK
     Route: 042
     Dates: start: 20180106, end: 20180106
  71. NPH INSULIN [Concomitant]
     Active Substance: INSULIN BEEF
     Indication: DIABETES MELLITUS
     Dosage: 4 U, UNK
     Route: 058
     Dates: start: 20180103, end: 20180103
  72. TRANEXAMIC ACID. [Concomitant]
     Active Substance: TRANEXAMIC ACID
     Indication: WOUND TREATMENT
     Dosage: 250 MG, UNK
     Route: 042
     Dates: start: 20171212, end: 20180126
  73. NOVOMIX [Concomitant]
     Active Substance: INSULIN ASPART
     Dosage: 22 U, UNK
     Route: 058
     Dates: start: 20180109, end: 20180111
  74. NOVOMIX [Concomitant]
     Active Substance: INSULIN ASPART
     Dosage: 10 U, UNK
     Route: 058
     Dates: start: 20180124, end: 20180126
  75. GLUCOSE [Concomitant]
     Active Substance: DEXTROSE
     Dosage: 40 ML, UNK
     Route: 042
     Dates: start: 20171121, end: 20171121
  76. DIMETHICONE. [Concomitant]
     Active Substance: DIMETHICONE
     Indication: PROPHYLAXIS
     Dosage: 40 MG, UNK
     Route: 048
     Dates: start: 20180103, end: 20180121
  77. DEXAMETHASONE. [Concomitant]
     Active Substance: DEXAMETHASONE
     Indication: INFECTION PROPHYLAXIS
     Dosage: UNK
     Route: 061
     Dates: start: 20180203, end: 20180204
  78. FUROSEMIDE. [Concomitant]
     Active Substance: FUROSEMIDE
     Indication: HYPERTENSION
     Dosage: 40 MG, UNK
     Route: 048
     Dates: start: 20171128, end: 20171128
  79. GLUCOPHAGE [Concomitant]
     Active Substance: METFORMIN HYDROCHLORIDE
     Indication: GOUT
     Dosage: 500 MG, UNK
     Route: 048
     Dates: start: 20180110, end: 20180215
  80. INSULIN ASPART [Concomitant]
     Active Substance: INSULIN ASPART
     Dosage: 8 U, UNK
     Route: 042
     Dates: start: 20171221, end: 20171228
  81. HUMAN MONOSULIN [Concomitant]
     Active Substance: INSULIN HUMAN
     Dosage: 10 U, UNK
     Route: 058
     Dates: start: 20180126, end: 20180126
  82. NPH INSULIN [Concomitant]
     Active Substance: INSULIN BEEF
     Dosage: 4 U, UNK
     Route: 058
     Dates: start: 20180112, end: 20180112
  83. INSULIN REGULAR [Concomitant]
     Active Substance: INSULIN NOS
     Dosage: 6 U, UNK
     Route: 058
     Dates: start: 20171203, end: 20171207
  84. PANTOPRAZOLE [Concomitant]
     Active Substance: PANTOPRAZOLE
     Indication: PROPHYLAXIS
     Dosage: 40 MG, UNK
     Route: 042
     Dates: start: 20171124, end: 20171124
  85. NOVOMIX [Concomitant]
     Active Substance: INSULIN ASPART
     Dosage: 18 U, UNK
     Route: 058
     Dates: start: 20180118, end: 20180119

REACTIONS (15)
  - Pneumonia aspiration [Fatal]
  - Haematuria [Fatal]
  - Pneumonia [Fatal]
  - Atrial fibrillation [Fatal]
  - Sepsis [Fatal]
  - Respiratory failure [Fatal]
  - Septic shock [Fatal]
  - Pulmonary tuberculosis [Unknown]
  - Gangrene [Unknown]
  - Acute kidney injury [Fatal]
  - Blister [Unknown]
  - Dyspnoea [Fatal]
  - Limb injury [Unknown]
  - Colitis [Fatal]
  - Tachycardia [Fatal]

NARRATIVE: CASE EVENT DATE: 20171106
